FAERS Safety Report 9631321 (Version 1)
Quarter: 2013Q4

REPORT INFORMATION
  Report Type: Spontaneous
  Country: CA (occurrence: CA)
  Receive Date: 20131018
  Receipt Date: 20131018
  Transmission Date: 20140711
  Serious: Yes (Life-Threatening, Hospitalization)
  Sender: FDA-Public Use
  Company Number: CA-ROXANE LABORATORIES, INC.-2013-RO-01685RO

PATIENT
  Age: 68 Year
  Sex: Male
  Weight: 80 kg

DRUGS (9)
  1. AMLODIPINE [Suspect]
     Route: 048
  2. METFORMIN [Suspect]
     Route: 048
  3. ETHANOL [Suspect]
  4. ACETYLSALICYLIC ACID [Concomitant]
  5. CLONAZEPAM [Concomitant]
  6. GLYBURIDE [Concomitant]
  7. IRBESARTAN [Concomitant]
  8. TAMSULOSIN [Concomitant]
  9. VITAMIN B12 [Concomitant]

REACTIONS (3)
  - Suicide attempt [Recovered/Resolved]
  - Shock [Recovered/Resolved]
  - Metabolic acidosis [Recovered/Resolved]
